FAERS Safety Report 14879848 (Version 1)
Quarter: 2018Q2

REPORT INFORMATION
  Report Type: Spontaneous
  Country: FR (occurrence: FR)
  Receive Date: 20180511
  Receipt Date: 20180511
  Transmission Date: 20180711
  Serious: Yes (Other)
  Sender: FDA-Public Use
  Company Number: FR-MERCK KGAA-2047603

PATIENT
  Sex: Female

DRUGS (1)
  1. NOVOTHYROX [Suspect]
     Active Substance: LEVOTHYROXINE SODIUM
     Indication: PRODUCT USED FOR UNKNOWN INDICATION
     Dates: start: 201705, end: 201709

REACTIONS (32)
  - Renal impairment [None]
  - Sleep disorder [None]
  - Marital problem [None]
  - Hypertension [None]
  - Arthralgia [None]
  - Diarrhoea [None]
  - Lipase increased [None]
  - Blood creatinine increased [None]
  - Oedema peripheral [None]
  - Loss of personal independence in daily activities [None]
  - Hyperhidrosis [None]
  - Feeling abnormal [None]
  - Irritability [None]
  - Alopecia [None]
  - Palpitations [None]
  - Blood pressure fluctuation [None]
  - Muscle spasms [None]
  - Malaise [None]
  - Migraine [None]
  - Gait disturbance [None]
  - Anxiety [None]
  - Fatigue [None]
  - Headache [None]
  - Insomnia [None]
  - Nervousness [None]
  - Paralysis [None]
  - Paraesthesia [None]
  - Social avoidant behaviour [None]
  - Myalgia [None]
  - Anal incontinence [None]
  - Weight increased [None]
  - Nausea [None]

NARRATIVE: CASE EVENT DATE: 2017
